FAERS Safety Report 10570668 (Version 1)
Quarter: 2014Q4

REPORT INFORMATION
  Report Type: Spontaneous
  Country: US (occurrence: None)
  Receive Date: 20141106
  Receipt Date: 20141106
  Transmission Date: 20150529
  Serious: Yes (Other)
  Sender: FDA-Public Use
  Company Number: None

PATIENT
  Age: 69 Year
  Sex: Female
  Weight: 80.74 kg

DRUGS (1)
  1. SIMPONI [Suspect]
     Active Substance: GOLIMUMAB
     Indication: RHEUMATOID ARTHRITIS
     Dosage: SUBCUTANEOUS 057 INJECTABLE EVERY MONTH
     Route: 058

REACTIONS (4)
  - Pain in extremity [None]
  - Diverticulitis [None]
  - Hair growth abnormal [None]
  - Nail disorder [None]

NARRATIVE: CASE EVENT DATE: 20140920
